FAERS Safety Report 10039802 (Version 1)
Quarter: 2014Q1

REPORT INFORMATION
  Report Type: Spontaneous
  Country: FR (occurrence: FR)
  Receive Date: 20140326
  Receipt Date: 20140326
  Transmission Date: 20141002
  Serious: Yes (Death)
  Sender: FDA-Public Use
  Company Number: FR-JNJFOC-20140311734

PATIENT
  Age: 93 Year
  Sex: Male

DRUGS (13)
  1. XARELTO [Suspect]
     Indication: CEREBROVASCULAR ACCIDENT PROPHYLAXIS
     Route: 048
     Dates: start: 20130911, end: 20131106
  2. XARELTO [Suspect]
     Indication: ATRIAL FIBRILLATION
     Route: 048
     Dates: start: 20130911, end: 20131106
  3. HYDROXYZINE [Concomitant]
     Route: 065
  4. PERINDOPRIL [Concomitant]
     Route: 065
  5. ESOMEPRAZOLE [Concomitant]
     Route: 065
  6. PARACETAMOL [Concomitant]
     Route: 065
  7. OPIUM [Concomitant]
     Route: 065
  8. CAFFEINE [Concomitant]
     Route: 065
  9. MIRTAZAPINE [Concomitant]
     Route: 065
  10. ACEBUTOLOL [Concomitant]
     Route: 065
  11. COLECALCIFEROL [Concomitant]
     Route: 065
  12. VITAMIN B1 [Concomitant]
     Route: 065
  13. VITAMIN B6 [Concomitant]
     Route: 065

REACTIONS (3)
  - Craniocerebral injury [Fatal]
  - Subdural haematoma [Fatal]
  - Fall [Fatal]
